FAERS Safety Report 16530501 (Version 2)
Quarter: 2019Q3

REPORT INFORMATION
  Report Type: Spontaneous
  Country: US (occurrence: US)
  Receive Date: 20190704
  Receipt Date: 20190814
  Transmission Date: 20191004
  Serious: Yes (Other)
  Sender: FDA-Public Use
  Company Number: US-AMGEN-USASP2019102862

PATIENT
  Age: 76 Year
  Sex: Female

DRUGS (6)
  1. NPLATE [Suspect]
     Active Substance: ROMIPLOSTIM
     Dosage: 643 MICROGRAM
     Route: 065
     Dates: start: 20190620
  2. NPLATE [Suspect]
     Active Substance: ROMIPLOSTIM
     Indication: IMMUNE THROMBOCYTOPENIC PURPURA
     Dosage: UNK
     Route: 065
  3. NPLATE [Suspect]
     Active Substance: ROMIPLOSTIM
     Indication: THROMBOCYTOPENIA
     Dosage: 375 MICROGRAM
     Route: 065
     Dates: start: 201812
  4. NPLATE [Suspect]
     Active Substance: ROMIPLOSTIM
     Dosage: 500 MICROGRAM
     Route: 065
     Dates: start: 20190523
  5. IMMUNOGLOBULIN [IMMUNOGLOBULIN HUMAN NORMAL] [Concomitant]
     Active Substance: HUMAN IMMUNOGLOBULIN G
  6. NPLATE [Suspect]
     Active Substance: ROMIPLOSTIM
     Dosage: 590 MICROGRAM
     Route: 065
     Dates: start: 20190613

REACTIONS (1)
  - Platelet count decreased [Unknown]
